FAERS Safety Report 10335679 (Version 1)
Quarter: 2014Q3

REPORT INFORMATION
  Report Type: Spontaneous
  Country: US (occurrence: US)
  Receive Date: 20140723
  Receipt Date: 20140723
  Transmission Date: 20150326
  Serious: Yes (Hospitalization)
  Sender: FDA-Public Use
  Company Number: US-BRISTOL-MYERS SQUIBB COMPANY-18989368

PATIENT
  Age: 83 Year

DRUGS (10)
  1. LISINOPRIL. [Concomitant]
     Active Substance: LISINOPRIL
  2. LASIX [Concomitant]
     Active Substance: FUROSEMIDE
  3. FERROUS SULFATE [Concomitant]
     Active Substance: FERROUS SULFATE\FERROUS SULFATE, DRIED
  4. METHOTREXATE [Concomitant]
     Active Substance: METHOTREXATE
  5. ATENOLOL. [Concomitant]
     Active Substance: ATENOLOL
  6. BABY ASPIRIN [Concomitant]
     Active Substance: ASPIRIN
  7. WARFARIN SODIUM. [Suspect]
     Active Substance: WARFARIN SODIUM
     Indication: ATRIAL FIBRILLATION
     Dosage: 1DF:3.75MG ONLY MONDAY,WEDNESDAY,AND FRIDAY.?2.5MG FOR ALL OTHER DAYS.
  8. REMICADE [Concomitant]
     Active Substance: INFLIXIMAB
  9. PREDNISONE. [Concomitant]
     Active Substance: PREDNISONE
  10. ZOCOR [Concomitant]
     Active Substance: SIMVASTATIN

REACTIONS (1)
  - International normalised ratio abnormal [Unknown]
